FAERS Safety Report 8588761 (Version 6)
Quarter: 2013Q2

REPORT INFORMATION
  Report Type: Spontaneous
  Country: US (occurrence: US)
  Receive Date: 20120531
  Receipt Date: 20130606
  Transmission Date: 20140414
  Serious: Yes (Hospitalization, Disabling, Other)
  Sender: FDA-Public Use
  Company Number: US-009507513-1205USA04575

PATIENT
  Sex: Female
  Weight: 50.34 kg

DRUGS (4)
  1. FOSAMAX [Suspect]
     Indication: OSTEOPOROSIS
     Dosage: 10 MG, QD
     Route: 048
     Dates: start: 20000626, end: 200905
  2. FOSAMAX [Suspect]
     Dosage: 70 MG, QW
     Route: 048
     Dates: start: 20021002, end: 200905
  3. ALENDRONATE SODIUM [Suspect]
     Indication: OSTEOPOROSIS
     Dosage: 70 MG, QW
     Route: 048
     Dates: start: 20080401, end: 200905
  4. CALCIUM (UNSPECIFIED) (+) VITAMIN D (UNSPECIFIED) [Concomitant]
     Dosage: 750 MG, BID
     Dates: start: 2000

REACTIONS (18)
  - Chest pain [Unknown]
  - Osteopenia [Unknown]
  - Limb injury [Unknown]
  - Ecchymosis [Unknown]
  - Hand fracture [Unknown]
  - Osteoarthritis [Unknown]
  - Explorative laparotomy [Unknown]
  - Electrocardiogram ST-T change [Unknown]
  - Ventricular extrasystoles [Unknown]
  - Blood pressure increased [Unknown]
  - Drug ineffective [Unknown]
  - Local swelling [Unknown]
  - Femur fracture [Not Recovered/Not Resolved]
  - Osteoporosis [Not Recovered/Not Resolved]
  - Stress fracture [Not Recovered/Not Resolved]
  - Low turnover osteopathy [Not Recovered/Not Resolved]
  - Intramedullary rod insertion [Not Recovered/Not Resolved]
  - Femur fracture [Not Recovered/Not Resolved]
